FAERS Safety Report 24994703 (Version 1)
Quarter: 2025Q1

REPORT INFORMATION
  Report Type: Spontaneous
  Country: SE (occurrence: SE)
  Receive Date: 20250221
  Receipt Date: 20250221
  Transmission Date: 20250409
  Serious: Yes (Disabling)
  Sender: ORGANON
  Company Number: None

PATIENT
  Age: 2 Year
  Sex: Male
  Weight: 20 kg

DRUGS (2)
  1. SINGULAIR [Suspect]
     Active Substance: MONTELUKAST SODIUM
     Indication: Asthma
     Dosage: 4 MG ONCE A DAY (STRENGTH: 4.16 MG)
     Dates: start: 20200401, end: 20200801
  2. ALBUTEROL SULFATE [Concomitant]
     Active Substance: ALBUTEROL SULFATE

REACTIONS (1)
  - Autism spectrum disorder [Recovered/Resolved with Sequelae]

NARRATIVE: CASE EVENT DATE: 20220401
